FAERS Safety Report 10203473 (Version 6)
Quarter: 2014Q3

REPORT INFORMATION
  Report Type: Spontaneous
  Country: US (occurrence: None)
  Receive Date: 20140523
  Receipt Date: 20140918
  Transmission Date: 20150326
  Serious: Yes (Hospitalization)
  Sender: FDA-Public Use
  Company Number: UTC-048120

PATIENT
  Age: 63 Year
  Sex: Male
  Weight: 127.9 kg

DRUGS (3)
  1. ADCIRCA [Concomitant]
     Active Substance: TADALAFIL
  2. TYVASO [Suspect]
     Active Substance: TREPROSTINIL
     Indication: PULMONARY ARTERIAL HYPERTENSION
     Route: 055
     Dates: start: 20100519
  3. TRACLEER [Concomitant]
     Active Substance: BOSENTAN\BOSENTAN MONOHYDRATE

REACTIONS (12)
  - Insomnia [None]
  - Nausea [None]
  - Hip arthroplasty [None]
  - Condition aggravated [None]
  - Weight decreased [None]
  - Hip fracture [None]
  - Decreased appetite [None]
  - Malaise [None]
  - Fall [None]
  - Fatigue [None]
  - Abdominal pain upper [None]
  - Therapy cessation [None]

NARRATIVE: CASE EVENT DATE: 201404
